FAERS Safety Report 15823796 (Version 2)
Quarter: 2019Q1

REPORT INFORMATION
  Report Type: Spontaneous
  Country: US (occurrence: US)
  Receive Date: 20190114
  Receipt Date: 20190213
  Transmission Date: 20190417
  Serious: No
  Sender: FDA-Public Use
  Company Number: US-009507513-1901USA004601

PATIENT
  Sex: Female

DRUGS (1)
  1. NEXPLANON [Suspect]
     Active Substance: ETONOGESTREL
     Dosage: IMPLANT, LEFT ARM, 4 YEARS
     Route: 059

REACTIONS (3)
  - Inappropriate schedule of product administration [Unknown]
  - Expired product administered [Unknown]
  - Incorrect product administration duration [Unknown]
